FAERS Safety Report 6339352-4 (Version None)
Quarter: 2009Q3

REPORT INFORMATION
  Report Type: 
  Country: None (occurrence: None)
  Receive Date: 20090903
  Receipt Date: 20090827
  Transmission Date: 20100115
  Serious: Yes (Other)
  Sender: FDA-Public Use
  Company Number: US-GILEAD-2009-0023973

PATIENT
  Sex: Male
  Weight: 88.53 kg

DRUGS (16)
  1. LETAIRIS [Suspect]
     Indication: PULMONARY ARTERIAL HYPERTENSION
     Route: 048
     Dates: start: 20090709
  2. SILDENAFIL CITRATE [Concomitant]
  3. WARFARIN SODIUM [Concomitant]
  4. PLAVIX [Concomitant]
  5. AMLODIPINE BESYLATE [Concomitant]
  6. FUROSEMIDE [Concomitant]
  7. LISINOPRIL [Concomitant]
  8. LOSARTAN POTASSIUM [Concomitant]
  9. METOPROLOL [Concomitant]
  10. DIGOXIN [Concomitant]
  11. SIMVASTATIN [Concomitant]
  12. K-TAB [Concomitant]
  13. GLYBURIDE [Concomitant]
  14. JANUVIA [Concomitant]
  15. ALLOPURINOL [Concomitant]
  16. ALPRAZOL [Concomitant]

REACTIONS (2)
  - CARDIAC FAILURE CONGESTIVE [None]
  - UPPER RESPIRATORY TRACT CONGESTION [None]
